FAERS Safety Report 17048779 (Version 1)
Quarter: 2019Q4

REPORT INFORMATION
  Report Type: Spontaneous
  Country: FR (occurrence: FR)
  Receive Date: 20191119
  Receipt Date: 20191119
  Transmission Date: 20200122
  Serious: Yes (Hospitalization)
  Sender: FDA-Public Use
  Company Number: FR-MYLANLABS-2019M1109705

PATIENT
  Age: 74 Year
  Sex: Female

DRUGS (7)
  1. CARBOPLATIN. [Suspect]
     Active Substance: CARBOPLATIN
     Indication: OVARIAN CANCER
     Dosage: 630 MILLIGRAM, Q3W
     Route: 042
     Dates: start: 20140731, end: 20141117
  2. GEMCITABINE. [Suspect]
     Active Substance: GEMCITABINE
     Indication: OVARIAN CANCER
     Dosage: 1800 MILLIGRAM, Q3W
     Route: 042
     Dates: start: 20160706, end: 20161107
  3. LYNPARZA [Suspect]
     Active Substance: OLAPARIB
     Indication: OVARIAN CANCER
     Dosage: NP
     Route: 048
     Dates: start: 201711, end: 201903
  4. AVASTIN                            /00848101/ [Suspect]
     Active Substance: SIMVASTATIN
     Indication: OVARIAN CANCER
     Dosage: 1100 MILLIGRAM, Q3W
     Route: 042
     Dates: start: 20160706, end: 20170621
  5. CAELYX [Suspect]
     Active Substance: DOXORUBICIN HYDROCHLORIDE
     Indication: OVARIAN CANCER
     Dosage: 54 MILLIGRAM, MONTHLY
     Route: 042
     Dates: start: 20170821, end: 20171027
  6. CARBOPLATIN. [Suspect]
     Active Substance: CARBOPLATIN
     Dosage: 440 MILLIGRAM, Q3W
     Route: 042
     Dates: start: 20170821, end: 20171027
  7. PACLITAXEL. [Suspect]
     Active Substance: PACLITAXEL
     Indication: OVARIAN CANCER
     Dosage: 306 MILLIGRAM, Q3W
     Route: 042
     Dates: start: 20140731, end: 20141117

REACTIONS (1)
  - Acute myeloid leukaemia [Not Recovered/Not Resolved]

NARRATIVE: CASE EVENT DATE: 20190403
